FAERS Safety Report 4336522-1 (Version None)
Quarter: 2004Q2

REPORT INFORMATION
  Report Type: 
  Country: None (occurrence: None)
  Receive Date: 20040407
  Receipt Date: 20040322
  Transmission Date: 20050107
  Serious: Yes (Hospitalization)
  Sender: FDA-Public Use
  Company Number: US_030896992

PATIENT
  Age: 18 Year
  Sex: Male

DRUGS (3)
  1. STRATTERA [Suspect]
     Indication: ATTENTION DEFICIT/HYPERACTIVITY DISORDER
     Dosage: 100 MG DAY
     Dates: start: 20030420, end: 20030807
  2. ZOLOFT [Concomitant]
  3. CONCERTA [Concomitant]

REACTIONS (8)
  - AGGRESSION [None]
  - ANGER [None]
  - EMOTIONAL DISORDER [None]
  - EYE MOVEMENT DISORDER [None]
  - IMPULSE-CONTROL DISORDER [None]
  - INSOMNIA [None]
  - LEGAL PROBLEM [None]
  - SUICIDAL IDEATION [None]
